FAERS Safety Report 23891562 (Version 1)
Quarter: 2024Q2

REPORT INFORMATION
  Report Type: Spontaneous
  Country: US (occurrence: US)
  Receive Date: 20240524
  Receipt Date: 20240524
  Transmission Date: 20240715
  Serious: No
  Sender: FDA-Public Use
  Company Number: US-TERSERA THERAPEUTICS LLC-2023TRS002416

PATIENT

DRUGS (4)
  1. GOSERELIN [Suspect]
     Active Substance: GOSERELIN
     Indication: Endometriosis
     Dosage: (FIRST TREATMENT), MONTHLY
     Route: 065
     Dates: start: 202302
  2. GOSERELIN [Suspect]
     Active Substance: GOSERELIN
     Dosage: (SECOND TREATMENT), MONTHLY
     Route: 065
     Dates: start: 202303
  3. GOSERELIN [Suspect]
     Active Substance: GOSERELIN
     Dosage: (THIRD TREATMENT), MONTHLY
     Route: 065
     Dates: start: 202304
  4. ZOLADEX [Suspect]
     Active Substance: GOSERELIN ACETATE
     Indication: Endometriosis
     Dosage: UNK
     Route: 065

REACTIONS (6)
  - Adnexa uteri pain [Not Recovered/Not Resolved]
  - Back pain [Not Recovered/Not Resolved]
  - Condition aggravated [Not Recovered/Not Resolved]
  - Gait disturbance [Unknown]
  - Illness [Unknown]
  - Vomiting [Unknown]
